FAERS Safety Report 9152032 (Version 2)
Quarter: 2013Q1

REPORT INFORMATION
  Report Type: Report from Study
  Country: IT (occurrence: IT)
  Receive Date: 20130308
  Receipt Date: 20130321
  Transmission Date: 20140127
  Serious: Yes (Hospitalization)
  Sender: FDA-Public Use
  Company Number: IT-GLAXOSMITHKLINE-B0873079A

PATIENT
  Age: 37 Year
  Sex: Male
  Weight: 80 kg

DRUGS (1)
  1. PAZOPANIB [Suspect]
     Indication: SARCOMA
     Dosage: 800MG PER DAY
     Route: 048

REACTIONS (2)
  - Pulmonary embolism [Not Recovered/Not Resolved]
  - Cardiotoxicity [Not Recovered/Not Resolved]
